FAERS Safety Report 7032368-4 (Version None)
Quarter: 2010Q4

REPORT INFORMATION
  Report Type: 
  Country: None (occurrence: None)
  Receive Date: 20101007
  Receipt Date: 20100730
  Transmission Date: 20110411
  Serious: Yes (Death, Other)
  Sender: FDA-Public Use
  Company Number: US-BRISTOL-MYERS SQUIBB COMPANY-15220619

PATIENT
  Age: 59 Year
  Sex: Male
  Weight: 70 kg

DRUGS (3)
  1. CETUXIMAB [Suspect]
     Indication: METASTASES TO LUNG
     Route: 042
     Dates: start: 20100312, end: 20100625
  2. CETUXIMAB [Suspect]
     Indication: HEAD AND NECK CANCER
     Route: 042
     Dates: start: 20100312, end: 20100625
  3. REVLIMID [Suspect]
     Indication: HEAD AND NECK CANCER
     Dosage: 25MG,1 IN 1D, 12MAR10/MAY2010 (2MONTHS).
     Route: 048
     Dates: start: 20100501, end: 20100702

REACTIONS (2)
  - EPISTAXIS [None]
  - HAEMORRHAGE [None]
